FAERS Safety Report 14971197 (Version 3)
Quarter: 2018Q2

REPORT INFORMATION
  Report Type: Report from Study
  Country: CA (occurrence: CA)
  Receive Date: 20180604
  Receipt Date: 20180611
  Transmission Date: 20180711
  Serious: Yes (Other)
  Sender: FDA-Public Use
  Company Number: PHHY2018CA013524

PATIENT
  Age: 67 Year
  Sex: Female

DRUGS (4)
  1. EPINEPHRINE. [Suspect]
     Active Substance: EPINEPHRINE
     Indication: PRODUCT USED FOR UNKNOWN INDICATION
     Dosage: 0.5 MG, UNK
     Route: 030
     Dates: start: 20180528
  2. NAPROXEN. [Concomitant]
     Active Substance: NAPROXEN
     Indication: PRODUCT USED FOR UNKNOWN INDICATION
     Route: 065
  3. MOBICOX [Concomitant]
     Active Substance: MELOXICAM
     Indication: PRODUCT USED FOR UNKNOWN INDICATION
     Route: 065
  4. COSENTYX [Suspect]
     Active Substance: SECUKINUMAB
     Indication: ANKYLOSING SPONDYLITIS
     Dosage: 150 MG, QW
     Route: 058
     Dates: start: 20180528, end: 20180528

REACTIONS (8)
  - Hypoaesthesia oral [Unknown]
  - Feeling hot [Unknown]
  - Headache [Unknown]
  - Hypersensitivity [Unknown]
  - Throat irritation [Unknown]
  - Blood pressure increased [Unknown]
  - Body temperature decreased [Unknown]
  - Tremor [Unknown]

NARRATIVE: CASE EVENT DATE: 20180528
